FAERS Safety Report 8159704-X (Version None)
Quarter: 2012Q1

REPORT INFORMATION
  Report Type: 
  Country: None (occurrence: None)
  Receive Date: 20120223
  Receipt Date: 20120208
  Transmission Date: 20120608
  Serious: Yes (Other)
  Sender: FDA-Public Use
  Company Number: ES-WATSON-2012-02714

PATIENT
  Age: 40 Year
  Sex: Male

DRUGS (3)
  1. PREDNISONE TAB [Suspect]
     Indication: SYSTEMIC LUPUS ERYTHEMATOSUS
     Dosage: UNK
     Route: 065
  2. HYDROXYCHLOROQUINE SULFATE [Suspect]
     Indication: SYSTEMIC LUPUS ERYTHEMATOSUS
     Dosage: UNK
     Route: 065
  3. PREDNISONE TAB [Suspect]
     Dosage: UNK MG, DAILY
     Route: 065
     Dates: start: 19910101, end: 20090419

REACTIONS (3)
  - OSTEONECROSIS [None]
  - SKIN ULCER [None]
  - BONE INFARCTION [None]
